FAERS Safety Report 10067376 (Version 1)
Quarter: 2014Q2

REPORT INFORMATION
  Report Type: Spontaneous
  Country: US (occurrence: None)
  Receive Date: 20140407
  Receipt Date: 20140407
  Transmission Date: 20141212
  Serious: Yes (Other)
  Sender: FDA-Public Use
  Company Number: AUR-APL-2014-04060

PATIENT
  Age: 53 Year
  Sex: Female

DRUGS (3)
  1. RIBAVIRIN [Suspect]
     Indication: PRODUCT USED FOR UNKNOWN INDICATION
  2. PEGYLATED INTERFERON [Suspect]
     Indication: PRODUCT USED FOR UNKNOWN INDICATION
  3. TELAPREVIR [Suspect]
     Indication: PRODUCT USED FOR UNKNOWN INDICATION

REACTIONS (10)
  - Ascites [None]
  - Hepatitis C [None]
  - Anaemia [None]
  - Rash [None]
  - Platelet count decreased [None]
  - Weight increased [None]
  - Portal hypertension [None]
  - Refusal of treatment by patient [None]
  - Nuclear magnetic resonance imaging abdominal abnormal [None]
  - Blood albumin decreased [None]
